FAERS Safety Report 5632474-2 (Version None)
Quarter: 2008Q1

REPORT INFORMATION
  Report Type: 
  Country: None (occurrence: None)
  Receive Date: 20080220
  Receipt Date: 20080213
  Transmission Date: 20080703
  Serious: Yes (Life-Threatening, Hospitalization)
  Sender: FDA-Public Use
  Company Number: US-GENENTECH-255243

PATIENT
  Sex: Female
  Weight: 106.12 kg

DRUGS (5)
  1. AVASTIN [Suspect]
     Indication: BREAST CANCER METASTATIC
     Dosage: 500 MG, UNK
     Route: 042
     Dates: start: 20080123
  2. NAVELBINE [Concomitant]
     Indication: BREAST CANCER METASTATIC
     Dates: start: 20080116
  3. TOPROL [Concomitant]
     Indication: DRUG USE FOR UNKNOWN INDICATION
     Dates: start: 20071201
  4. LISINOPRIL [Concomitant]
     Indication: DRUG USE FOR UNKNOWN INDICATION
     Dates: start: 20071201
  5. CARDIOL [Concomitant]
     Indication: DRUG USE FOR UNKNOWN INDICATION
     Dates: start: 20071201

REACTIONS (1)
  - HEPATITIS ACUTE [None]
